FAERS Safety Report 23853657 (Version 1)
Quarter: 2024Q2

REPORT INFORMATION
  Report Type: Spontaneous
  Country: US (occurrence: None)
  Receive Date: 20240513
  Receipt Date: 20240513
  Transmission Date: 20240716
  Serious: Yes (Death, Hospitalization)
  Sender: FDA-Public Use
  Company Number: None

PATIENT
  Age: 59 Year
  Sex: Male
  Weight: 100 kg

DRUGS (1)
  1. APIXABAN [Suspect]
     Active Substance: APIXABAN
     Indication: Factor V Leiden mutation
     Dosage: FREQUENCY : TWICE A DAY;?
     Route: 048
     Dates: start: 20230501, end: 20240221

REACTIONS (10)
  - Fall [None]
  - Abnormal behaviour [None]
  - Posturing [None]
  - Subdural haematoma [None]
  - Brain herniation [None]
  - Intervertebral disc protrusion [None]
  - Cerebral ischaemia [None]
  - Subarachnoid haemorrhage [None]
  - Cerebral mass effect [None]
  - Haemorrhage intracranial [None]

NARRATIVE: CASE EVENT DATE: 20240221
